FAERS Safety Report 11207616 (Version 1)
Quarter: 2015Q2

REPORT INFORMATION
  Report Type: Report from Study
  Country: US (occurrence: US)
  Receive Date: 20150622
  Receipt Date: 20150622
  Transmission Date: 20150821
  Serious: No
  Sender: FDA-Public Use
  Company Number: US-ABBVIE-15P-163-1372069-00

PATIENT
  Age: 67 Year
  Sex: Female

DRUGS (2)
  1. VIEKIRA PAK [Suspect]
     Active Substance: DASABUVIR\OMBITASVIR\PARITAPREVIR\RITONAVIR
     Indication: HEPATITIS C
     Dosage: COULD NOT READ TXT
     Route: 048
     Dates: start: 20150223
  2. RIBAVIRIN. [Concomitant]
     Active Substance: RIBAVIRIN
     Indication: HEPATITIS C

REACTIONS (16)
  - Acne [Unknown]
  - Decreased appetite [Unknown]
  - Diarrhoea [Unknown]
  - Weight decreased [Unknown]
  - Vision blurred [Unknown]
  - Rash [Unknown]
  - Dry skin [Unknown]
  - Fatigue [Unknown]
  - Alopecia [Unknown]
  - Irritability [Unknown]
  - Papule [Unknown]
  - Syphilis [Unknown]
  - Insomnia [Unknown]
  - Blister [Unknown]
  - Mood altered [Unknown]
  - Pruritus [Unknown]

NARRATIVE: CASE EVENT DATE: 201503
